FAERS Safety Report 7574379-6 (Version None)
Quarter: 2011Q2

REPORT INFORMATION
  Report Type: 
  Country: None (occurrence: None)
  Receive Date: 20110627
  Receipt Date: 20110112
  Transmission Date: 20111010
  Serious: Yes (Other)
  Sender: FDA-Public Use
  Company Number: US-BAYER-201037409NA

PATIENT
  Age: 20 Year
  Sex: Female
  Weight: 75.737 kg

DRUGS (8)
  1. DROSPIRENONE AND ETHINYL ESTRADIOL [Suspect]
     Indication: ACNE
     Route: 048
     Dates: start: 20030917, end: 20051201
  2. DROSPIRENONE AND ETHINYL ESTRADIOL [Suspect]
     Indication: PREMENSTRUAL SYNDROME
     Dosage: UNK
     Dates: start: 20070101, end: 20090101
  3. IBUPROFEN [Concomitant]
     Dosage: UNK UNK, PRN
     Route: 048
  4. SUDAFED 12 HOUR [Concomitant]
     Dosage: UNK UNK, PRN
     Route: 048
  5. YASMIN [Suspect]
     Indication: ACNE
     Dosage: UNK
     Dates: start: 20030101, end: 20070101
  6. YASMIN [Suspect]
     Indication: PREMENSTRUAL SYNDROME
  7. YASMIN [Suspect]
     Indication: CONTRACEPTION
     Dosage: UNK UNK, UNK
     Route: 048
     Dates: start: 20030917, end: 20051201
  8. TYLENOL-500 [Concomitant]
     Dosage: UNK UNK, PRN
     Route: 048

REACTIONS (8)
  - PAIN [None]
  - EMOTIONAL DISTRESS [None]
  - CHOLECYSTITIS CHRONIC [None]
  - ABDOMINAL PAIN UPPER [None]
  - VOMITING [None]
  - SCAR [None]
  - NAUSEA [None]
  - DIARRHOEA [None]
